FAERS Safety Report 7864817-3 (Version None)
Quarter: 2011Q4

REPORT INFORMATION
  Report Type: 
  Country: None (occurrence: None)
  Receive Date: 20111028
  Receipt Date: 20101018
  Transmission Date: 20120403
  Serious: No
  Sender: FDA-Public Use
  Company Number: US-GLAXOSMITHKLINE-A0872129A

PATIENT
  Age: 86 Year
  Sex: Male

DRUGS (9)
  1. ASPIRIN [Concomitant]
  2. ADVAIR DISKUS 100/50 [Suspect]
     Indication: COUGH
     Dosage: 1PUFF TWICE PER DAY
     Route: 055
  3. METOPROLOL TARTRATE [Concomitant]
  4. PREVACID [Concomitant]
  5. CADUET [Concomitant]
  6. ALLOPURINOL [Concomitant]
  7. CAPTOPRIL [Concomitant]
  8. TRIMIPRAMINE MALEATE [Concomitant]
  9. DICYCLOMINE [Concomitant]

REACTIONS (3)
  - INCREASED UPPER AIRWAY SECRETION [None]
  - DYSPHONIA [None]
  - MUCOUS MEMBRANE DISORDER [None]
